FAERS Safety Report 9726162 (Version 1)
Quarter: 2013Q4

REPORT INFORMATION
  Report Type: Spontaneous
  Country: IT (occurrence: None)
  Receive Date: 20131127
  Receipt Date: 20131127
  Transmission Date: 20140711
  Serious: No
  Sender: FDA-Public Use
  Company Number: IT-2013-3797

PATIENT
  Age: 69 Year
  Sex: 0
  Weight: 73 kg

DRUGS (5)
  1. NAVELBINE [Suspect]
     Indication: LUNG NEOPLASM MALIGNANT
     Dosage: 47 MG, CYCLICAL (1/21)
     Route: 042
     Dates: start: 20120516, end: 20130516
  2. CISPLATIN [Suspect]
     Indication: LUNG NEOPLASM MALIGNANT
     Dosage: 150.4 MG, CYCLICAL (1/21)
     Route: 042
     Dates: start: 20130516, end: 20130516
  3. ONDANSETRON (ODANSETRON) [Concomitant]
  4. SOLDESAM (DEXAMETHASONE SODIUM PHOSPHATE) [Concomitant]
  5. RANIDIL (RANITIDINE HYDROCHLORIDE) [Concomitant]

REACTIONS (8)
  - Dermatitis acneiform [None]
  - Diarrhoea [None]
  - Nausea [None]
  - Vomiting [None]
  - Stomatitis [None]
  - Hyperpyrexia [None]
  - Chest pain [None]
  - Abdominal pain [None]
